FAERS Safety Report 17191790 (Version 1)
Quarter: 2020Q1

REPORT INFORMATION
  Report Type: Spontaneous
  Country: US (occurrence: US)
  Receive Date: 20191222
  Receipt Date: 20191222
  Transmission Date: 20200409
  Serious: Yes (Life-Threatening, Other)
  Sender: FDA-Public Use
  Company Number: None

PATIENT
  Age: 65 Year
  Sex: Female
  Weight: 81 kg

DRUGS (13)
  1. CEFEPIME [Suspect]
     Active Substance: CEFEPIME HYDROCHLORIDE
  2. TRAMADOL. [Concomitant]
     Active Substance: TRAMADOL
  3. DIAZEPAM. [Concomitant]
     Active Substance: DIAZEPAM
  4. SOMA [Concomitant]
     Active Substance: CARISOPRODOL
  5. LANTUS [Concomitant]
     Active Substance: INSULIN GLARGINE
  6. OMEPRAZOLE. [Concomitant]
     Active Substance: OMEPRAZOLE
  7. VANCOMYCIN [Suspect]
     Active Substance: VANCOMYCIN
     Indication: STAPHYLOCOCCAL INFECTION
     Route: 042
     Dates: start: 20180327, end: 20190327
  8. GABAPENTIN. [Concomitant]
     Active Substance: GABAPENTIN
  9. HUMALOG [Concomitant]
     Active Substance: INSULIN LISPRO
  10. VITAMIN D [Concomitant]
     Active Substance: VITAMIN D NOS
  11. MULTIVITAMIN [Concomitant]
     Active Substance: VITAMINS
  12. TIZANIDINE. [Concomitant]
     Active Substance: TIZANIDINE
  13. ZOLPIDEM [Concomitant]
     Active Substance: ZOLPIDEM TARTRATE

REACTIONS (3)
  - Breast cancer metastatic [None]
  - Drug level above therapeutic [None]
  - Tardive dyskinesia [None]

NARRATIVE: CASE EVENT DATE: 20191125
